FAERS Safety Report 10260175 (Version 1)
Quarter: 2014Q2

REPORT INFORMATION
  Report Type: Spontaneous
  Country: US (occurrence: US)
  Receive Date: 20140625
  Receipt Date: 20140625
  Transmission Date: 20141212
  Serious: No
  Sender: FDA-Public Use
  Company Number: US-GALDERMA-US13001753

PATIENT
  Sex: Male

DRUGS (1)
  1. ADAPALENE (ADAPALENE) CREAM, 0.1% [Suspect]
     Indication: ACNE
     Route: 061

REACTIONS (1)
  - Drug ineffective [Unknown]
